FAERS Safety Report 16046085 (Version 2)
Quarter: 2019Q3

REPORT INFORMATION
  Report Type: Report from Study
  Country: US (occurrence: US)
  Receive Date: 20190307
  Receipt Date: 20190920
  Transmission Date: 20191004
  Serious: Yes (Other)
  Sender: FDA-Public Use
  Company Number: US-ROCHE-2278888

PATIENT
  Sex: Female

DRUGS (1)
  1. XOLAIR [Suspect]
     Active Substance: OMALIZUMAB
     Indication: ANAPHYLACTIC SHOCK
     Route: 058
     Dates: start: 20190211

REACTIONS (3)
  - Intentional product use issue [Unknown]
  - Cerebrovascular accident [Not Recovered/Not Resolved]
  - Off label use [Unknown]
